FAERS Safety Report 17286169 (Version 1)
Quarter: 2020Q1

REPORT INFORMATION
  Report Type: Spontaneous
  Country: TR (occurrence: TR)
  Receive Date: 20200118
  Receipt Date: 20200118
  Transmission Date: 20200409
  Serious: Yes (Other)
  Sender: FDA-Public Use
  Company Number: TR-009507513-2001TUR003696

PATIENT
  Age: 73 Year
  Sex: Male

DRUGS (2)
  1. ZOLEDRONIC ACID [Suspect]
     Active Substance: ZOLEDRONIC ACID
     Dosage: 2 MILLIGRAM
  2. INTRON A [Suspect]
     Active Substance: INTERFERON ALFA-2B
     Dosage: 10.000.000 IU, 3 TIMES A WEEK
     Dates: start: 20181128

REACTIONS (4)
  - Fatigue [Unknown]
  - Pyrexia [Unknown]
  - Prostatomegaly [Unknown]
  - Malignant neoplasm progression [Unknown]
